FAERS Safety Report 8274969-1 (Version None)
Quarter: 2012Q2

REPORT INFORMATION
  Report Type: 
  Country: None (occurrence: None)
  Receive Date: 20120411
  Receipt Date: 20120402
  Transmission Date: 20120825
  Serious: Yes (Other)
  Sender: FDA-Public Use
  Company Number: US-ASTRAZENECA-2012SE21976

PATIENT
  Age: 60 Year
  Sex: Male

DRUGS (1)
  1. CRESTOR [Suspect]
     Route: 048

REACTIONS (4)
  - HEARING IMPAIRED [None]
  - FEAR OF DEATH [None]
  - LIMB DISCOMFORT [None]
  - ARTERIAL OCCLUSIVE DISEASE [None]
